FAERS Safety Report 5113044-1 (Version None)
Quarter: 2006Q3

REPORT INFORMATION
  Report Type: 
  Country: None (occurrence: None)
  Receive Date: 20060922
  Receipt Date: 20060912
  Transmission Date: 20061208
  Serious: Yes (Other)
  Sender: FDA-Public Use
  Company Number: US-BOEHRINGER INGELHEIM PHARMACEUTICALS, INC.-2006-DE-04878GD

PATIENT
  Age: 9 Year
  Sex: Male

DRUGS (7)
  1. IPRATROPIUM BROMIDE [Suspect]
     Indication: ASTHMA
     Route: 055
  2. ALBUTEROL SPIROS [Suspect]
     Indication: ASTHMA
     Route: 055
  3. METHYLPREDNISOLONE ACETATE [Suspect]
     Indication: ASTHMA
     Route: 042
  4. OXYGEN [Suspect]
     Indication: ASTHMA
     Route: 055
  5. HELIOX [Suspect]
     Indication: ASTHMA
     Route: 055
  6. KETAMINE HCL [Suspect]
     Indication: ASTHMA
     Dosage: 2 MG/KG BOLUS FOLLOWED BY A DRIP INFUSION OF 2 MG/KG/H - 3 MG/KG/H
     Route: 042
  7. NORMAL SALINE [Concomitant]
     Route: 042

REACTIONS (4)
  - CONDITION AGGRAVATED [None]
  - CONFUSIONAL STATE [None]
  - DRUG INEFFECTIVE [None]
  - NYSTAGMUS [None]
